FAERS Safety Report 16163039 (Version 1)
Quarter: 2019Q2

REPORT INFORMATION
  Report Type: Spontaneous
  Country: US (occurrence: US)
  Receive Date: 20190405
  Receipt Date: 20190405
  Transmission Date: 20190711
  Serious: No
  Sender: FDA-Public Use
  Company Number: US-ASTRAZENECA-2019SE39533

PATIENT
  Sex: Female

DRUGS (2)
  1. FASLODEX [Suspect]
     Active Substance: FULVESTRANT
     Dosage: DOSE AND FREQUENCY UNKNOWN
     Route: 030
  2. IBRANCE [Suspect]
     Active Substance: PALBOCICLIB
     Indication: BREAST CANCER
     Dosage: 125MG, DAILY, DOSING 21 DAYS ON, AND 7 DAYS OFF
     Route: 048
     Dates: start: 20181011

REACTIONS (8)
  - Constipation [Unknown]
  - Depression [Unknown]
  - Memory impairment [Unknown]
  - Nausea [Unknown]
  - Herpes zoster [Recovered/Resolved]
  - Blood count abnormal [Unknown]
  - Epistaxis [Unknown]
  - Asthenia [Unknown]
